FAERS Safety Report 7265534-3 (Version None)
Quarter: 2011Q1

REPORT INFORMATION
  Report Type: 
  Country: None (occurrence: None)
  Receive Date: 20110131
  Receipt Date: 20101110
  Transmission Date: 20110831
  Serious: Yes (Other)
  Sender: FDA-Public Use
  Company Number: US-PFIZER INC-2010145181

PATIENT
  Age: 50 Year
  Sex: Male

DRUGS (1)
  1. SUTENT [Suspect]
     Indication: RENAL CANCER METASTATIC
     Dosage: 50 MG, UNK
     Route: 048
     Dates: start: 20100601, end: 20101001

REACTIONS (4)
  - LUNG DISORDER [None]
  - SPINAL DISORDER [None]
  - NEOPLASM MALIGNANT [None]
  - BRAIN NEOPLASM MALIGNANT [None]
